FAERS Safety Report 12087396 (Version 1)
Quarter: 2016Q1

REPORT INFORMATION
  Report Type: Spontaneous
  Country: US (occurrence: US)
  Receive Date: 20160217
  Receipt Date: 20160217
  Transmission Date: 20160526
  Serious: No
  Sender: FDA-Public Use
  Company Number: US-ALLERGAN-1517216US

PATIENT
  Sex: Female

DRUGS (5)
  1. REFRESH P.M. [Suspect]
     Active Substance: MINERAL OIL\PETROLATUM
     Indication: SJOGREN^S SYNDROME
     Dosage: UNK
     Route: 047
  2. REFRESH P.M. [Suspect]
     Active Substance: MINERAL OIL\PETROLATUM
     Dosage: UNK
     Route: 047
  3. RESTASIS [Suspect]
     Active Substance: CYCLOSPORINE
     Indication: SJOGREN^S SYNDROME
     Dosage: UNK
     Route: 047
  4. REFRESH P.M. [Suspect]
     Active Substance: MINERAL OIL\PETROLATUM
     Dosage: UNK
     Route: 047
  5. REFRESH OPTIVE ADVANCED [Suspect]
     Active Substance: CARBOXYMETHYLCELLULOSE SODIUM\GLYCERIN\POLYSORBATE 80
     Indication: SJOGREN^S SYNDROME
     Dosage: UNK
     Route: 047

REACTIONS (2)
  - Off label use [Unknown]
  - Eye irritation [Not Recovered/Not Resolved]
